FAERS Safety Report 7704634-8 (Version None)
Quarter: 2011Q3

REPORT INFORMATION
  Report Type: 
  Country: None (occurrence: None)
  Receive Date: 20110823
  Receipt Date: 20081027
  Transmission Date: 20111222
  Serious: Yes (Hospitalization)
  Sender: FDA-Public Use
  Company Number: LT-GLAXOSMITHKLINE-B0544642A

PATIENT
  Age: 19 Year
  Sex: Male

DRUGS (2)
  1. LAMOTRIGINE [Suspect]
     Indication: EPILEPSY
     Route: 065
  2. VALPROIC ACID [Suspect]
     Indication: EPILEPSY
     Dosage: 2G PER DAY
     Route: 065

REACTIONS (12)
  - BLISTER [None]
  - TOXIC EPIDERMAL NECROLYSIS [None]
  - PRURITUS [None]
  - DERMATITIS BULLOUS [None]
  - HAEMORRHAGE [None]
  - ENTEROCOCCUS TEST POSITIVE [None]
  - RASH MACULO-PAPULAR [None]
  - PSEUDOMONAS INFECTION [None]
  - ACINETOBACTER TEST POSITIVE [None]
  - EYE PAIN [None]
  - PYREXIA [None]
  - STAPHYLOCOCCAL INFECTION [None]
